FAERS Safety Report 11249489 (Version 1)
Quarter: 2015Q3

REPORT INFORMATION
  Report Type: Spontaneous
  Country: AU (occurrence: AU)
  Receive Date: 20150708
  Receipt Date: 20150708
  Transmission Date: 20151125
  Serious: Yes (Hospitalization)
  Sender: FDA-Public Use
  Company Number: AU-AKORN PHARMACEUTICALS-2015AKN00375

PATIENT
  Sex: Male

DRUGS (2)
  1. RIFAMPIN. [Suspect]
     Active Substance: RIFAMPIN
  2. METHADONE [Suspect]
     Active Substance: METHADONE HYDROCHLORIDE
     Indication: ARTHRALGIA

REACTIONS (4)
  - Drug interaction [Unknown]
  - Agitation [Unknown]
  - Insomnia [Unknown]
  - Night sweats [Unknown]
